FAERS Safety Report 25609949 (Version 3)
Quarter: 2025Q3

REPORT INFORMATION
  Report Type: Report from Study
  Country: US (occurrence: US)
  Receive Date: 20250728
  Receipt Date: 20250925
  Transmission Date: 20251021
  Serious: Yes (Other)
  Sender: SUNOVION
  Company Number: US-SMPA-2025SPA009373

PATIENT
  Age: 78 Year
  Sex: Male

DRUGS (2)
  1. ORGOVYX [Suspect]
     Active Substance: RELUGOLIX
     Indication: Prostate cancer
     Route: 048
  2. ORGOVYX [Suspect]
     Active Substance: RELUGOLIX
     Route: 048

REACTIONS (7)
  - Loss of consciousness [Unknown]
  - Blood potassium increased [Recovering/Resolving]
  - Heart rate decreased [Unknown]
  - Mood swings [Unknown]
  - Irritability [Recovered/Resolved]
  - Dizziness [Unknown]
  - Weight increased [Unknown]
